FAERS Safety Report 18269102 (Version 3)
Quarter: 2021Q2

REPORT INFORMATION
  Report Type: Spontaneous
  Country: DE (occurrence: DE)
  Receive Date: 20200915
  Receipt Date: 20210402
  Transmission Date: 20210717
  Serious: Yes (Other)
  Sender: FDA-Public Use
  Company Number: DE-BRACCO-2020DE03736

PATIENT
  Sex: Female

DRUGS (1)
  1. PROHANCE [Suspect]
     Active Substance: GADOTERIDOL
     Dosage: UNK, SINGLE
     Dates: start: 20150409, end: 20150409

REACTIONS (8)
  - Pain in extremity [Unknown]
  - Lymphoedema [Unknown]
  - Contrast media toxicity [Unknown]
  - Skin hypertrophy [Unknown]
  - Pain [Unknown]
  - Food intolerance [Unknown]
  - Arthralgia [Unknown]
  - Blood pressure fluctuation [Unknown]

NARRATIVE: CASE EVENT DATE: 201504
